FAERS Safety Report 18730134 (Version 1)
Quarter: 2021Q1

REPORT INFORMATION
  Report Type: Report from Study
  Country: NL (occurrence: NL)
  Receive Date: 20210112
  Receipt Date: 20210112
  Transmission Date: 20210419
  Serious: Yes (Death)
  Sender: FDA-Public Use
  Company Number: NVSC2021NL005156

PATIENT
  Sex: Male

DRUGS (3)
  1. ZOMETA [Suspect]
     Active Substance: ZOLEDRONIC ACID
     Indication: PROSTATE CANCER
     Dosage: UNK (1 X PER 12 WEEKS)
     Route: 065
     Dates: start: 20160321
  2. ZOMETA [Suspect]
     Active Substance: ZOLEDRONIC ACID
     Dosage: UNK (1 X PER 12 WEEKS)
     Route: 065
     Dates: start: 20201120
  3. ZOMETA [Suspect]
     Active Substance: ZOLEDRONIC ACID
     Dosage: UNK (1 X PER 12 WEEKS)
     Route: 065
     Dates: start: 20200828

REACTIONS (2)
  - Death [Fatal]
  - Inappropriate schedule of product administration [Unknown]
